FAERS Safety Report 9359939 (Version 2)
Quarter: 2013Q3

REPORT INFORMATION
  Report Type: Report from Study
  Country: DE (occurrence: DE)
  Receive Date: 20130621
  Receipt Date: 20130719
  Transmission Date: 20140515
  Serious: Yes (Death, Hospitalization)
  Sender: FDA-Public Use
  Company Number: DE-ROCHE-1238076

PATIENT
  Age: 75 Year
  Sex: Female
  Weight: 70 kg

DRUGS (11)
  1. BEVACIZUMAB [Suspect]
     Indication: COLORECTAL CANCER METASTATIC
     Route: 042
     Dates: start: 20121211, end: 20130409
  2. IRINOTECAN [Suspect]
     Indication: COLORECTAL CANCER METASTATIC
     Route: 042
     Dates: start: 20121211, end: 20130409
  3. FOLINIC ACID [Suspect]
     Indication: COLORECTAL CANCER METASTATIC
     Route: 042
     Dates: start: 20121211, end: 20130409
  4. 5-FU [Suspect]
     Indication: COLORECTAL CANCER METASTATIC
     Dosage: MOST RECENT  CYCLE RECEIVED ON 09/APR/2013
     Route: 042
     Dates: start: 20121211
  5. AMLODIPIN [Concomitant]
     Indication: HYPERTENSION
     Route: 048
  6. BISOPROLOL [Concomitant]
     Indication: HYPERTENSION
     Route: 048
  7. GLIBENCLAMID [Concomitant]
     Indication: DIABETES MELLITUS
     Route: 048
  8. INSULIN [Concomitant]
     Indication: DIABETES MELLITUS
     Dosage: 8 IU DAILY?RAPID INSULIN
     Route: 058
  9. SAROTEN [Concomitant]
     Indication: DEPRESSION
     Route: 048
  10. SAROTEN [Concomitant]
     Route: 048
  11. ASS [Concomitant]
     Dosage: 100 MG ONCE DAILY
     Route: 048

REACTIONS (9)
  - Death [Fatal]
  - Pneumonia [Recovered/Resolved with Sequelae]
  - Pyrexia [Recovered/Resolved]
  - C-reactive protein increased [Recovered/Resolved]
  - Anaemia of malignant disease [Recovered/Resolved]
  - Oedema peripheral [Recovered/Resolved]
  - Tachycardia [Recovered/Resolved with Sequelae]
  - Hyperventilation [Recovered/Resolved with Sequelae]
  - Depression [Recovered/Resolved with Sequelae]
